FAERS Safety Report 19074369 (Version 1)
Quarter: 2021Q1

REPORT INFORMATION
  Report Type: Spontaneous
  Country: US (occurrence: US)
  Receive Date: 20210330
  Receipt Date: 20210330
  Transmission Date: 20210420
  Serious: Yes (Hospitalization, Other)
  Sender: FDA-Public Use
  Company Number: US-INCYTE CORPORATION-2021IN002658

PATIENT

DRUGS (1)
  1. JAKAFI [Suspect]
     Active Substance: RUXOLITINIB
     Dosage: 5 MILLIGRAM, BID
     Route: 048
     Dates: start: 20160727

REACTIONS (4)
  - Dyspnoea [Recovering/Resolving]
  - Product dose omission issue [Unknown]
  - Pain [Recovering/Resolving]
  - Pulmonary thrombosis [Recovering/Resolving]
